FAERS Safety Report 19838646 (Version 1)
Quarter: 2021Q3

REPORT INFORMATION
  Report Type: Spontaneous
  Country: US (occurrence: US)
  Receive Date: 20210915
  Receipt Date: 20210915
  Transmission Date: 20211014
  Serious: Yes (Other)
  Sender: FDA-Public Use
  Company Number: None

PATIENT
  Age: 81 Year
  Sex: Female
  Weight: 84.15 kg

DRUGS (7)
  1. THYROID MEDICINE [Concomitant]
     Active Substance: UNSPECIFIED INGREDIENT
  2. MULTIVITAMIN [Concomitant]
     Active Substance: VITAMINS
  3. VENAFLAXINE [Concomitant]
  4. TYLENOL [Concomitant]
     Active Substance: ACETAMINOPHEN
  5. DESVENLAFAXINE. [Suspect]
     Active Substance: DESVENLAFAXINE
     Indication: DEPRESSION
     Dosage: ?          QUANTITY:1 CAPSULE(S);?
     Route: 048
     Dates: start: 20210914, end: 20210914
  6. AMBIEN [Concomitant]
     Active Substance: ZOLPIDEM TARTRATE
  7. CLONAZAPAM, [Concomitant]

REACTIONS (3)
  - Oropharyngeal pain [None]
  - Dyspnoea [None]
  - Tinnitus [None]

NARRATIVE: CASE EVENT DATE: 20210914
